FAERS Safety Report 5302072-9 (Version None)
Quarter: 2007Q2

REPORT INFORMATION
  Report Type: 
  Country: None (occurrence: None)
  Receive Date: 20070419
  Receipt Date: 20070416
  Transmission Date: 20071010
  Serious: Yes (Other)
  Sender: FDA-Public Use
  Company Number: US-GLAXOSMITHKLINE-A0633506A

PATIENT
  Sex: Male

DRUGS (20)
  1. IMITREX [Suspect]
     Indication: MIGRAINE
     Dosage: 20MG PER DAY
     Route: 045
     Dates: end: 20061101
  2. IMITREX [Suspect]
     Route: 048
     Dates: start: 20000101
  3. IMITREX [Suspect]
     Route: 030
  4. INDERAL [Concomitant]
  5. COLACE [Concomitant]
  6. SINEMET [Concomitant]
  7. REQUIP [Concomitant]
  8. INDOCIN [Concomitant]
  9. CHLORPHENIRAMINE MALEATE [Concomitant]
  10. LISINOPRIL [Concomitant]
  11. VERAPAMIL [Concomitant]
  12. LOVASTATIN [Concomitant]
  13. DETROL [Concomitant]
  14. PREVACID [Concomitant]
  15. ASTHMA MEDICATION [Concomitant]
     Route: 055
  16. NEURONTIN [Concomitant]
  17. DEPAKOTE [Concomitant]
  18. BACLOFEN [Concomitant]
  19. PROZAC [Concomitant]
     Indication: MIGRAINE PROPHYLAXIS
  20. AXERT [Concomitant]
     Indication: MIGRAINE

REACTIONS (5)
  - DRUG ABUSER [None]
  - DRUG INEFFECTIVE [None]
  - EPISTAXIS [None]
  - PHARMACEUTICAL PRODUCT COMPLAINT [None]
  - VISUAL DISTURBANCE [None]
